FAERS Safety Report 9627999 (Version 16)
Quarter: 2014Q2

REPORT INFORMATION
  Report Type: Report from Study
  Country: US (occurrence: US)
  Receive Date: 20131016
  Receipt Date: 20140408
  Transmission Date: 20141212
  Serious: Yes (Hospitalization, Other)
  Sender: FDA-Public Use
  Company Number: US-PFIZER INC-2013289375

PATIENT
  Age: 59 Year
  Sex: Female
  Weight: 65.53 kg

DRUGS (7)
  1. BUPROPION HCL [Suspect]
     Indication: SMOKING CESSATION THERAPY
     Dosage: 150 MG, 2X/DAY
     Route: 048
     Dates: start: 20130917, end: 20130930
  2. EFFEXOR [Suspect]
     Indication: DEPRESSION
     Dosage: 300 MG, DAILY
     Route: 048
     Dates: start: 20081001, end: 20130930
  3. SEROQUEL [Suspect]
     Indication: MANIA
     Dosage: 300 MG, DAILY
     Route: 048
     Dates: start: 20081001, end: 20130930
  4. TEGRETOL [Suspect]
     Indication: BIPOLAR I DISORDER
     Dosage: 300 MG, DAILY
     Route: 048
     Dates: start: 20081001, end: 20130913
  5. TEGRETOL [Suspect]
     Dosage: 800 MG, DAILY
     Route: 048
     Dates: start: 20130913, end: 20130930
  6. ACETAMINOPHEN W/CODEINE [Concomitant]
     Indication: PAIN
     Dosage: ACETAMINOPHEN 300 MG/CODEINE 30 MG, PRN
     Route: 048
     Dates: start: 20130914, end: 20130916
  7. IBUPROFEN [Concomitant]
     Indication: PAIN
     Dosage: 800 MG, 3X/DAY
     Route: 048
     Dates: start: 20081001, end: 20130930

REACTIONS (3)
  - Neuropsychiatric syndrome [Recovered/Resolved]
  - Psychiatric symptom [Recovered/Resolved]
  - Aggression [Recovered/Resolved]
